FAERS Safety Report 8182109-2 (Version None)
Quarter: 2012Q1

REPORT INFORMATION
  Report Type: 
  Country: None (occurrence: None)
  Receive Date: 20120302
  Receipt Date: 20120216
  Transmission Date: 20120608
  Serious: Yes (Hospitalization, Other)
  Sender: FDA-Public Use
  Company Number: DE-ABBOTT-11P-062-0709727-00

PATIENT
  Sex: Male
  Weight: 65.5 kg

DRUGS (24)
  1. ENANTONE MONATSDEPOT [Suspect]
     Dates: start: 20080701, end: 20110201
  2. ROXIMEXAL [Concomitant]
     Indication: PRODUCT USED FOR UNKNOWN INDICATION
  3. LEVOTHYROXINE SODIUM [Concomitant]
     Route: 048
     Dates: start: 20070830, end: 20080110
  4. AMBROMEXAL S SYRUP [Concomitant]
     Indication: PRODUCT USED FOR UNKNOWN INDICATION
  5. AKNEFUG-OXID [Concomitant]
     Indication: PRODUCT USED FOR UNKNOWN INDICATION
  6. MUCOSOLVAN [Concomitant]
     Indication: PRODUCT USED FOR UNKNOWN INDICATION
     Dosage: 30MG/5ML
  7. DESLORATADINE [Concomitant]
     Indication: PRODUCT USED FOR UNKNOWN INDICATION
  8. SYMBICORT [Concomitant]
     Indication: PRODUCT USED FOR UNKNOWN INDICATION
  9. CLINDAMYCIN [Concomitant]
     Indication: PRODUCT USED FOR UNKNOWN INDICATION
  10. TAMIFLU [Concomitant]
     Indication: PRODUCT USED FOR UNKNOWN INDICATION
  11. ZITHROMAX [Concomitant]
     Indication: PRODUCT USED FOR UNKNOWN INDICATION
  12. IBUPROFEN [Concomitant]
     Indication: PRODUCT USED FOR UNKNOWN INDICATION
  13. METAMIZOL MEXAL [Concomitant]
     Indication: PRODUCT USED FOR UNKNOWN INDICATION
  14. LEVOFLOXACIN [Concomitant]
     Indication: PRODUCT USED FOR UNKNOWN INDICATION
  15. LEVOTHYROXINE SODIUM [Concomitant]
     Indication: POST PROCEDURAL HYPOTHYROIDISM
     Route: 048
     Dates: start: 20070501, end: 20070829
  16. KEIMAX [Concomitant]
     Indication: PRODUCT USED FOR UNKNOWN INDICATION
  17. CEC [Concomitant]
     Indication: PRODUCT USED FOR UNKNOWN INDICATION
  18. LEVOTHYROXINE SODIUM [Concomitant]
     Route: 048
     Dates: start: 20080111
  19. ELMEX [Concomitant]
     Indication: PRODUCT USED FOR UNKNOWN INDICATION
  20. ALBUTEROL [Concomitant]
     Indication: PRODUCT USED FOR UNKNOWN INDICATION
  21. ACETYLCYSTEINE [Concomitant]
     Indication: PRODUCT USED FOR UNKNOWN INDICATION
  22. BUDES [Concomitant]
     Indication: PRODUCT USED FOR UNKNOWN INDICATION
  23. ENANTONE MONATSDEPOT [Suspect]
     Indication: PRECOCIOUS PUBERTY
     Route: 058
     Dates: start: 20080530, end: 20080601
  24. SALBU [Concomitant]
     Indication: PRODUCT USED FOR UNKNOWN INDICATION
     Route: 055

REACTIONS (8)
  - THORACIC VERTEBRAL FRACTURE [None]
  - PYREXIA [None]
  - OSTEOPOROSIS [None]
  - HEADACHE [None]
  - INJECTION SITE INDURATION [None]
  - BONE PAIN [None]
  - LUMBAR VERTEBRAL FRACTURE [None]
  - DIZZINESS [None]
